FAERS Safety Report 17332903 (Version 1)
Quarter: 2020Q1

REPORT INFORMATION
  Report Type: Other
  Country: US (occurrence: US)
  Receive Date: 20200128
  Receipt Date: 20200128
  Transmission Date: 20200409
  Serious: Yes (Hospitalization, Other)
  Sender: FDA-Public Use
  Company Number: US-PRINSTON PHARMACEUTICAL INC.-2020PRN00016

PATIENT
  Sex: Male
  Weight: 140.59 kg

DRUGS (1)
  1. VALSARTAN. [Suspect]
     Active Substance: VALSARTAN
     Indication: BLOOD PRESSURE ABNORMAL
     Dosage: 160 MG, 1X/DAY
     Route: 048
     Dates: start: 2016, end: 2018

REACTIONS (4)
  - Performance status decreased [Unknown]
  - Bladder cancer [Recovering/Resolving]
  - Diverticulitis [Unknown]
  - Product contamination chemical [Unknown]

NARRATIVE: CASE EVENT DATE: 2018
